FAERS Safety Report 8126772 (Version 7)
Quarter: 2014Q3

REPORT INFORMATION
  Report Type: Report from Study
  Country: US (occurrence: US)
  Receive Date: 20110908
  Receipt Date: 20140717
  Transmission Date: 20150326
  Serious: Yes (Death, Hospitalization, Other)
  Sender: FDA-Public Use
  Company Number: US-BRISTOL-MYERS SQUIBB COMPANY-16023723

PATIENT
  Age: 61 Year
  Sex: Male
  Weight: 87.1 kg

DRUGS (1)
  1. YERVOY [Suspect]
     Active Substance: IPILIMUMAB
     Indication: MALIGNANT MELANOMA
     Dosage: 10MG/KG
     Route: 042
     Dates: start: 20110803, end: 20110803

REACTIONS (18)
  - Large intestine perforation [Fatal]
  - Respiratory failure [Unknown]
  - Blood bilirubin increased [Unknown]
  - Sepsis [Unknown]
  - Lymphocyte count decreased [Unknown]
  - Platelet count decreased [Recovering/Resolving]
  - Renal failure acute [Unknown]
  - Hypophosphataemia [Unknown]
  - Aspartate aminotransferase increased [Unknown]
  - Supraventricular tachycardia [Unknown]
  - Acidosis [Unknown]
  - Blood urea increased [Unknown]
  - Colitis [Recovered/Resolved]
  - Hypoalbuminaemia [Unknown]
  - Blood creatinine increased [Unknown]
  - Hyponatraemia [Recovered/Resolved]
  - Lung infection [Unknown]
  - Multi-organ failure [Fatal]

NARRATIVE: CASE EVENT DATE: 2011
